FAERS Safety Report 12187486 (Version 1)
Quarter: 2016Q1

REPORT INFORMATION
  Report Type: Spontaneous
  Country: CH (occurrence: CH)
  Receive Date: 20160317
  Receipt Date: 20160317
  Transmission Date: 20160526
  Serious: Yes (Other)
  Sender: FDA-Public Use
  Company Number: CH-PFIZER INC-2016152129

PATIENT
  Sex: Female

DRUGS (1)
  1. SORTIS [Suspect]
     Active Substance: ATORVASTATIN
     Dosage: UNK

REACTIONS (1)
  - Pericardial effusion [Unknown]
